FAERS Safety Report 15433915 (Version 4)
Quarter: 2020Q2

REPORT INFORMATION
  Report Type: Spontaneous
  Country: US (occurrence: US)
  Receive Date: 20180927
  Receipt Date: 20200601
  Transmission Date: 20200713
  Serious: No
  Sender: FDA-Public Use
  Company Number: US-SA-2018SA267898

PATIENT

DRUGS (9)
  1. ADDERALL [Concomitant]
     Active Substance: AMPHETAMINE ASPARTATE\AMPHETAMINE SULFATE\DEXTROAMPHETAMINE SACCHARATE\DEXTROAMPHETAMINE SULFATE
  2. HYDROXYZINE HCL [Concomitant]
     Active Substance: HYDROXYZINE HYDROCHLORIDE
  3. MELATONIN [Concomitant]
     Active Substance: MELATONIN
  4. ALLEGRA-D [Concomitant]
     Active Substance: FEXOFENADINE\PSEUDOEPHEDRINE
  5. BENADRYL ALLERGY [Concomitant]
     Active Substance: DIPHENHYDRAMINE HYDROCHLORIDE
  6. REXULTI [Concomitant]
     Active Substance: BREXPIPRAZOLE
  7. VRAYLAR [Concomitant]
     Active Substance: CARIPRAZINE
  8. DUPIXENT [Suspect]
     Active Substance: DUPILUMAB
     Indication: DERMATITIS ATOPIC
     Dosage: 300 MG, QOW
     Route: 058
     Dates: start: 20180830
  9. SINGULAIR [Concomitant]
     Active Substance: MONTELUKAST SODIUM

REACTIONS (8)
  - Product use issue [Unknown]
  - Depression [Not Recovered/Not Resolved]
  - Eczema [Recovered/Resolved]
  - Eczema [Not Recovered/Not Resolved]
  - Dermatitis atopic [Recovered/Resolved]
  - Nausea [Not Recovered/Not Resolved]
  - Fatigue [Not Recovered/Not Resolved]
  - Pruritus [Not Recovered/Not Resolved]

NARRATIVE: CASE EVENT DATE: 20180830
